FAERS Safety Report 9546971 (Version 2)
Quarter: 2013Q3

REPORT INFORMATION
  Report Type: Spontaneous
  Country: US (occurrence: None)
  Receive Date: 20130606
  Receipt Date: 20130906
  Transmission Date: 20140515
  Serious: Yes (Other)
  Sender: FDA-Public Use
  Company Number: 163-POMAL-13050110

PATIENT
  Age: 86 Year
  Sex: Female

DRUGS (1)
  1. POMALYST (POMALIDOMIDE) (4 MILLIGRAM, CAPSULES) [Suspect]
     Indication: PLASMA CELL MYELOMA
     Dosage: 21 IN 21 D
     Route: 048
     Dates: start: 20130408, end: 20130419

REACTIONS (5)
  - Fatigue [None]
  - Asthenia [None]
  - Decreased appetite [None]
  - Fall [None]
  - Adverse event [None]
